FAERS Safety Report 5643832-4 (Version None)
Quarter: 2008Q1

REPORT INFORMATION
  Report Type: 
  Country: None (occurrence: None)
  Receive Date: 20080131
  Receipt Date: 20071030
  Transmission Date: 20080703
  Serious: Yes (Hospitalization, Other)
  Sender: FDA-Public Use
  Company Number: 163-21880-07091576

PATIENT
  Age: 39 Year
  Sex: Female

DRUGS (4)
  1. REVLIMID [Suspect]
     Indication: MULTIPLE MYELOMA
     Dosage: 15 MG, TIW ORAL
     Route: 048
     Dates: start: 20070409, end: 20070925
  2. HORMONAL CONTRACEPTIVE   (ETHINYL ESTRADIOL W/ NORGESTREL) [Suspect]
     Indication: DRUG USE FOR UNKNOWN INDICATION
     Dosage: UNKNOWN
  3. DEXAMETHASONE TAB [Suspect]
     Dates: start: 20051201, end: 20071001
  4. ERYTHROPOETIN        (EPOETIN ALFA) [Concomitant]

REACTIONS (1)
  - DEEP VEIN THROMBOSIS [None]
